FAERS Safety Report 10789502 (Version 1)
Quarter: 2015Q1

REPORT INFORMATION
  Report Type: Spontaneous
  Country: US (occurrence: US)
  Receive Date: 20150212
  Receipt Date: 20150212
  Transmission Date: 20150721
  Serious: No
  Sender: FDA-Public Use
  Company Number: US-GLAXOSMITHKLINE-A1090665A

PATIENT

DRUGS (9)
  1. PREDNISONE. [Suspect]
     Active Substance: PREDNISONE
     Indication: GOUT
     Route: 048
     Dates: start: 20140920
  2. SIMVASTATIN. [Concomitant]
     Active Substance: SIMVASTATIN
  3. CLONIDINE. [Concomitant]
     Active Substance: CLONIDINE
  4. ADVAIR DISKUS [Suspect]
     Active Substance: FLUTICASONE PROPIONATE\SALMETEROL XINAFOATE
     Indication: CHRONIC OBSTRUCTIVE PULMONARY DISEASE
     Dosage: 1 PUFF(S), BID
     Dates: start: 2004
  5. ACCOLATE [Concomitant]
     Active Substance: ZAFIRLUKAST
  6. BENAZEPRIL [Concomitant]
     Active Substance: BENAZEPRIL\BENAZEPRIL HYDROCHLORIDE
  7. SPIRIVA [Concomitant]
     Active Substance: TIOTROPIUM BROMIDE MONOHYDRATE
  8. PREDNISONE. [Concomitant]
     Active Substance: PREDNISONE
  9. ALLOPURINOL. [Concomitant]
     Active Substance: ALLOPURINOL

REACTIONS (9)
  - Feeling drunk [Unknown]
  - Tension [Unknown]
  - Euphoric mood [Unknown]
  - Skin ulcer [Recovering/Resolving]
  - Hypoaesthesia [Recovering/Resolving]
  - Blister [Recovering/Resolving]
  - Swelling face [Recovering/Resolving]
  - Impatience [Unknown]
  - Herpes zoster [Recovering/Resolving]

NARRATIVE: CASE EVENT DATE: 20140804
